FAERS Safety Report 7300644-3 (Version None)
Quarter: 2011Q1

REPORT INFORMATION
  Report Type: 
  Country: None (occurrence: None)
  Receive Date: 20110218
  Receipt Date: 20110211
  Transmission Date: 20110831
  Serious: No
  Sender: FDA-Public Use
  Company Number: US-BIOGENIDEC-2011BI005159

PATIENT
  Age: 46 Year
  Sex: Female

DRUGS (3)
  1. AVONEX [Suspect]
     Indication: MULTIPLE SCLEROSIS
     Route: 030
     Dates: start: 20040801, end: 20080801
  2. AVONEX [Suspect]
     Route: 030
     Dates: start: 20100901
  3. AVONEX [Suspect]
     Route: 030
     Dates: start: 20030313

REACTIONS (1)
  - LARYNGITIS ALLERGIC [None]
